FAERS Safety Report 5017318-4 (Version None)
Quarter: 2006Q2

REPORT INFORMATION
  Report Type: 
  Country: None (occurrence: None)
  Receive Date: 20060414
  Receipt Date: 20060302
  Transmission Date: 20061013
  Serious: No
  Sender: FDA-Public Use
  Company Number: 2006SP001029

PATIENT
  Age: 79 Year
  Sex: Male
  Weight: 74.1178 kg

DRUGS (19)
  1. LUNESTA [Suspect]
     Indication: INSOMNIA
     Dosage: 3 MG;HS;ORAL
     Route: 048
     Dates: start: 20060104, end: 20060223
  2. AMLODIPINE BESYLATE [Concomitant]
  3. COZAAR [Concomitant]
  4. SIMVASTATIN [Concomitant]
  5. PLAVIX [Concomitant]
  6. REQUIP [Concomitant]
  7. IPRATROPIUM BROMIDE [Concomitant]
  8. PAXIL [Concomitant]
  9. ASCORBIC ACID [Concomitant]
  10. VITAMIN B-12 [Concomitant]
  11. VITAMIN B6 [Concomitant]
  12. FOLIC ACID [Concomitant]
  13. NASACORT [Concomitant]
  14. MULTIVITAMIN [Concomitant]
  15. SAW PALMETTO [Concomitant]
  16. CALTRATE [Concomitant]
  17. ASPIRIN [Concomitant]
  18. GUAIFENESIN [Concomitant]
  19. TYLENOL (CAPLET) [Concomitant]

REACTIONS (4)
  - ASTHENIA [None]
  - DIZZINESS [None]
  - NAUSEA [None]
  - PNEUMONITIS [None]
